FAERS Safety Report 10616544 (Version 5)
Quarter: 2015Q3

REPORT INFORMATION
  Report Type: Report from Study
  Country: US (occurrence: US)
  Receive Date: 20141201
  Receipt Date: 20150923
  Transmission Date: 20151125
  Serious: Yes (Hospitalization, Other)
  Sender: FDA-Public Use
  Company Number: US-SA-2013SA116760

PATIENT
  Age: 53 Year
  Sex: Female
  Weight: 79.37 kg

DRUGS (14)
  1. OLOPATADINE HYDROCHLORIDE. [Concomitant]
     Active Substance: OLOPATADINE HYDROCHLORIDE
     Dosage: 0.6 % SOLUTION
  2. AUBAGIO [Suspect]
     Active Substance: TERIFLUNOMIDE
     Indication: MULTIPLE SCLEROSIS
     Route: 048
     Dates: start: 20131028
  3. NEURONTIN [Concomitant]
     Active Substance: GABAPENTIN
     Dosage: STRENGTH: 300 MG 1 TO 2 CAPSULE
  4. ASPIRIN. [Concomitant]
     Active Substance: ASPIRIN
     Dosage: STRENGTH: 81 MG
  5. VITAMIN C [Concomitant]
     Active Substance: ASCORBIC ACID
  6. GINSENG NOS [Concomitant]
     Active Substance: HERBALS
     Dosage: STRENGTH: 100 MG
  7. AZELASTINE HYDROCHLORIDE. [Concomitant]
     Active Substance: AZELASTINE HYDROCHLORIDE
     Dosage: 0.05 % SOLUTION
  8. CYCLOBENZAPRINE HYDROCHLORIDE. [Concomitant]
     Active Substance: CYCLOBENZAPRINE HYDROCHLORIDE
     Dosage: STRENGTH: 10 MG
  9. ALPHAGAN P [Concomitant]
     Active Substance: BRIMONIDINE TARTRATE
     Dosage: SOLUTION
  10. IBUPROFEN. [Concomitant]
     Active Substance: IBUPROFEN
     Dosage: STRENGTH: 600 MG
  11. AUBAGIO [Suspect]
     Active Substance: TERIFLUNOMIDE
     Indication: MULTIPLE SCLEROSIS
     Route: 048
     Dates: start: 20131028
  12. IPRATROPIUM BROMIDE. [Concomitant]
     Active Substance: IPRATROPIUM BROMIDE
     Dosage: STRENGTH: 0.03 % SOLUTION
  13. OMEGA-3 POLYUNSATURATED FATTY ACID [Concomitant]
  14. NORCO [Concomitant]
     Active Substance: ACETAMINOPHEN\HYDROCODONE BITARTRATE
     Dosage: STRENGTH: 5- 325 MG

REACTIONS (17)
  - Condition aggravated [Unknown]
  - Pain [Unknown]
  - Drug dose omission [Unknown]
  - Hot flush [Recovered/Resolved]
  - Dizziness [Recovered/Resolved]
  - Urinary incontinence [Unknown]
  - Unevaluable event [Unknown]
  - Gait disturbance [Recovering/Resolving]
  - Surgery [Unknown]
  - Back pain [Not Recovered/Not Resolved]
  - Sciatica [Unknown]
  - Condition aggravated [Recovered/Resolved]
  - Musculoskeletal pain [Unknown]
  - Urinary retention [Unknown]
  - Cystitis [Unknown]
  - Nausea [Recovered/Resolved]
  - Blood pressure increased [Recovered/Resolved]

NARRATIVE: CASE EVENT DATE: 20131110
